FAERS Safety Report 8137583-4 (Version None)
Quarter: 2012Q1

REPORT INFORMATION
  Report Type: 
  Country: None (occurrence: None)
  Receive Date: 20120215
  Receipt Date: 20120212
  Transmission Date: 20120608
  Serious: No
  Sender: FDA-Public Use
  Company Number: US-PFIZER INC-2012037729

PATIENT
  Sex: Male
  Weight: 82.54 kg

DRUGS (8)
  1. AMLODIPINE [Concomitant]
     Dosage: 2.5 MG, UNK
  2. NEURONTIN [Suspect]
     Indication: SPINAL COLUMN STENOSIS
     Dosage: 300 MG, 3X/DAY
     Route: 048
     Dates: start: 20120209
  3. TRIAMTERENE [Concomitant]
     Dosage: 37.5 MG, UNK
  4. LOSARTAN [Concomitant]
     Dosage: 100 MG, UNK
  5. GABAPENTIN [Suspect]
     Indication: SPINAL COLUMN STENOSIS
     Dosage: UNK, 1X/DAY
  6. PRAVASTATIN [Concomitant]
     Dosage: 40 MG, UNK
  7. ALLOPURINOL [Concomitant]
     Dosage: 100 MG, UNK
  8. WARFARIN [Concomitant]
     Dosage: 2 MG, UNK

REACTIONS (2)
  - INSOMNIA [None]
  - PRODUCT SUBSTITUTION ISSUE [None]
